FAERS Safety Report 6196000-4 (Version None)
Quarter: 2009Q2

REPORT INFORMATION
  Report Type: 
  Country: None (occurrence: None)
  Receive Date: 20090520
  Receipt Date: 20070327
  Transmission Date: 20091009
  Serious: Yes (Hospitalization)
  Sender: FDA-Public Use
  Company Number: NL-ROCHE-392107

PATIENT
  Sex: Female

DRUGS (3)
  1. CAPECITABINE [Suspect]
     Route: 048
     Dates: start: 20030401, end: 20041224
  2. CAPECITABINE [Suspect]
     Dosage: PER PROTOCOL, DOSAGE IS 1250 MG/M2 TWICE DAILY ON DAY1 TO 14
     Route: 048
     Dates: end: 20041209
  3. PANTOPRAZOL [Concomitant]

REACTIONS (2)
  - DERMATOMYOSITIS [None]
  - POLYMYOSITIS [None]
